FAERS Safety Report 8894793 (Version 1)
Quarter: 2012Q4

REPORT INFORMATION
  Report Type: 
  Country: CA (occurrence: CA)
  Receive Date: 20121107
  Receipt Date: 20121107
  Transmission Date: 20130627
  Serious: Yes (Death, Hospitalization, Other)
  Sender: FDA-Public Use
  Company Number: PHHY2008CA07064

PATIENT
  Sex: Female

DRUGS (3)
  1. SANDOSTATIN LAR [Suspect]
     Indication: PANCREATITIS CHRONIC
     Dosage: 20 mg, TIW
     Route: 030
     Dates: start: 19981231, end: 20070705
  2. SANDOSTATIN LAR [Suspect]
     Dosage: 30 mg, UNK
     Route: 030
     Dates: start: 20080123, end: 20080929
  3. SANDOSTATIN LAR [Suspect]
     Dates: start: 19990101

REACTIONS (17)
  - General physical health deterioration [Fatal]
  - Appetite disorder [Recovered/Resolved]
  - Blood pressure decreased [Unknown]
  - Dizziness [Unknown]
  - Dehydration [Unknown]
  - Gastrointestinal haemorrhage [Unknown]
  - Haematemesis [Recovered/Resolved]
  - Faeces discoloured [Recovered/Resolved]
  - Oedema peripheral [Unknown]
  - Weight decreased [Unknown]
  - Malaise [Unknown]
  - Skin discolouration [Unknown]
  - Pain [Unknown]
  - Vomiting [Unknown]
  - Fatigue [Not Recovered/Not Resolved]
  - Heart rate increased [Unknown]
  - Asthenia [Not Recovered/Not Resolved]
